FAERS Safety Report 16438339 (Version 1)
Quarter: 2019Q2

REPORT INFORMATION
  Report Type: Spontaneous
  Country: AU (occurrence: AU)
  Receive Date: 20190617
  Receipt Date: 20190617
  Transmission Date: 20190711
  Serious: Yes (Hospitalization)
  Sender: FDA-Public Use
  Company Number: AU-CELLTRION INC.-2019AU021895

PATIENT

DRUGS (1)
  1. INFLIXIMAB PFIZER (UNKNOWN) [Suspect]
     Active Substance: INFLIXIMAB
     Indication: CROHN^S DISEASE
     Dosage: EVERY 8 WEEKS FOR OVER A PERIOD OF 4 YEARS

REACTIONS (4)
  - Paraspinal abscess [Recovered/Resolved]
  - Mass [Recovered/Resolved]
  - Staphylococcal infection [Recovered/Resolved]
  - Extradural abscess [Recovered/Resolved]
